FAERS Safety Report 9388892 (Version 3)
Quarter: 2013Q4

REPORT INFORMATION
  Report Type: Spontaneous
  Country: US (occurrence: US)
  Receive Date: 20130708
  Receipt Date: 20131003
  Transmission Date: 20140711
  Serious: No
  Sender: FDA-Public Use
  Company Number: US-PFIZER INC-2013200529

PATIENT
  Age: 48 Year
  Sex: Female
  Weight: 71.66 kg

DRUGS (3)
  1. LYRICA [Suspect]
     Indication: NEURALGIA
     Dosage: 50 MG, 3X/DAY
     Route: 048
     Dates: start: 2008
  2. LYRICA [Suspect]
     Indication: NERVE COMPRESSION
  3. LYRICA [Suspect]
     Indication: MUSCULOSKELETAL DISORDER

REACTIONS (5)
  - Malaise [Not Recovered/Not Resolved]
  - Pain [Unknown]
  - Nasopharyngitis [Not Recovered/Not Resolved]
  - Cough [Not Recovered/Not Resolved]
  - Drug ineffective [Unknown]
